FAERS Safety Report 8879048 (Version 1)
Quarter: 2012Q4

REPORT INFORMATION
  Report Type: Spontaneous
  Country: US (occurrence: None)
  Receive Date: 20121031
  Receipt Date: 20121031
  Transmission Date: 20130627
  Serious: Yes (Other)
  Sender: FDA-Public Use
  Company Number: None

PATIENT
  Sex: Female
  Weight: 61.24 kg

DRUGS (2)
  1. MIRENA IUD [Suspect]
     Indication: BIRTH CONTROL
     Dates: start: 20040210, end: 20040217
  2. DEVICE [Concomitant]

REACTIONS (4)
  - Uterine perforation [None]
  - Scar [None]
  - Abortion spontaneous [None]
  - Maternal exposure before pregnancy [None]
